FAERS Safety Report 10543232 (Version 2)
Quarter: 2015Q1

REPORT INFORMATION
  Report Type: Report from Study
  Country: US (occurrence: US)
  Receive Date: 20141027
  Receipt Date: 20150109
  Transmission Date: 20150720
  Serious: Yes (Other)
  Sender: FDA-Public Use
  Company Number: PHEH2014US020841

PATIENT
  Sex: Male
  Weight: 79.37 kg

DRUGS (2)
  1. GILENYA [Suspect]
     Active Substance: FINGOLIMOD HYDROCHLORIDE
     Indication: RELAPSING-REMITTING MULTIPLE SCLEROSIS
     Dosage: 0.5 MG, QD
     Route: 048
     Dates: start: 2010
  2. PRILOSEC [Concomitant]
     Active Substance: OMEPRAZOLE MAGNESIUM
     Indication: PRODUCT USED FOR UNKNOWN INDICATION
     Dosage: 20 MG, UNK
     Route: 065

REACTIONS (16)
  - Joint stiffness [Unknown]
  - Diplopia [Unknown]
  - Reflexes abnormal [Unknown]
  - Cerebellar syndrome [Unknown]
  - Depression [Unknown]
  - Fatigue [Unknown]
  - Gait disturbance [Unknown]
  - Pallor [Unknown]
  - Constipation [Unknown]
  - Pain [Unknown]
  - Haemorrhoids [Unknown]
  - Muscular weakness [Unknown]
  - Ocular discomfort [Unknown]
  - Micturition urgency [Unknown]
  - Sensory disturbance [Unknown]
  - Dysphagia [Unknown]
